FAERS Safety Report 8988792 (Version 2)
Quarter: 2013Q1

REPORT INFORMATION
  Report Type: Spontaneous
  Country: US (occurrence: US)
  Receive Date: 20121227
  Receipt Date: 20130118
  Transmission Date: 20140127
  Serious: Yes (Other)
  Sender: FDA-Public Use
  Company Number: US-GILEAD-2012-0066809

PATIENT
  Sex: Female

DRUGS (2)
  1. LETAIRIS [Suspect]
     Indication: SCLERODERMA
     Dosage: 5 MG, QD
     Route: 048
     Dates: start: 20091006
  2. LETAIRIS [Suspect]
     Indication: PULMONARY HYPERTENSION

REACTIONS (1)
  - Rheumatoid arthritis [Unknown]
